FAERS Safety Report 8407996-1 (Version None)
Quarter: 2012Q2

REPORT INFORMATION
  Report Type: 
  Country: None (occurrence: None)
  Receive Date: 20120604
  Receipt Date: 20120525
  Transmission Date: 20120825
  Serious: Yes (Other)
  Sender: FDA-Public Use
  Company Number: US-MERCK-1205USA05079

PATIENT
  Sex: Female

DRUGS (2)
  1. FOSAMAX [Suspect]
     Route: 048
     Dates: start: 20070101, end: 20100101
  2. FOSAMAX [Suspect]
     Route: 048
     Dates: start: 20070101, end: 20100101

REACTIONS (1)
  - FEMUR FRACTURE [None]
